FAERS Safety Report 6433688-4 (Version None)
Quarter: 2009Q4

REPORT INFORMATION
  Report Type: 
  Country: None (occurrence: None)
  Receive Date: 20091110
  Receipt Date: 20091102
  Transmission Date: 20100525
  Serious: Yes (Other)
  Sender: FDA-Public Use
  Company Number: US-ROCHE-664832

PATIENT
  Sex: Female
  Weight: 59 kg

DRUGS (2)
  1. CAPECITABINE [Suspect]
     Indication: BREAST CANCER
     Dosage: 14 DAYS ON, 7 DAYS OFF
     Route: 048
     Dates: start: 20090604, end: 20090908
  2. CAPECITABINE [Suspect]
     Route: 048
     Dates: end: 20091026

REACTIONS (1)
  - MALIGNANT NEOPLASM PROGRESSION [None]
